FAERS Safety Report 9783481 (Version 1)
Quarter: 2013Q4

REPORT INFORMATION
  Report Type: Spontaneous
  Country: US (occurrence: None)
  Receive Date: 20131223
  Receipt Date: 20131223
  Transmission Date: 20140711
  Serious: Yes (Hospitalization, Other)
  Sender: FDA-Public Use
  Company Number: DAV-AE-ATE-13-02

PATIENT
  Age: 69 Year
  Sex: Female

DRUGS (3)
  1. ATENOLOL [Suspect]
     Indication: OVERDOSE
  2. AMLODIPINE [Concomitant]
  3. THIORIDAZINE [Concomitant]

REACTIONS (5)
  - Overdose [None]
  - Sinus bradycardia [None]
  - Hypokalaemia [None]
  - Tachycardia [None]
  - Shock [None]
